FAERS Safety Report 12415743 (Version 1)
Quarter: 2016Q2

REPORT INFORMATION
  Report Type: Spontaneous
  Country: US (occurrence: US)
  Receive Date: 20160530
  Receipt Date: 20160530
  Transmission Date: 20160815
  Serious: Yes (Other)
  Sender: FDA-Public Use
  Company Number: US-BAUSCH-BL-2016-012106

PATIENT
  Age: 57 Year
  Sex: Female
  Weight: 79.45 kg

DRUGS (5)
  1. BUPROPION. [Suspect]
     Active Substance: BUPROPION
     Indication: DEPRESSION
     Route: 065
     Dates: start: 20140626, end: 201509
  2. HYDROCHLOROTHIAZIDE. [Concomitant]
     Active Substance: HYDROCHLOROTHIAZIDE
     Indication: OEDEMA
     Route: 048
     Dates: start: 20160512
  3. INDAPAMIDE. [Concomitant]
     Active Substance: INDAPAMIDE
     Indication: OEDEMA
     Route: 048
     Dates: start: 1996, end: 20160512
  4. WELLBUTRIN XL [Suspect]
     Active Substance: BUPROPION HYDROCHLORIDE
     Indication: DEPRESSION
     Route: 048
     Dates: start: 201305
  5. LEVOTHYROXINE. [Concomitant]
     Active Substance: LEVOTHYROXINE
     Indication: THYROID DISORDER
     Route: 048
     Dates: start: 1996

REACTIONS (2)
  - Drug dose omission [Unknown]
  - Violence-related symptom [Not Recovered/Not Resolved]
